FAERS Safety Report 23963093 (Version 1)
Quarter: 2024Q2

REPORT INFORMATION
  Report Type: Report from Study
  Country: RU (occurrence: RU)
  Receive Date: 20240611
  Receipt Date: 20240611
  Transmission Date: 20240715
  Serious: Yes (Other)
  Sender: FDA-Public Use
  Company Number: RU-002147023-NVSC2024RU069903

PATIENT
  Age: 77 Year
  Sex: Female

DRUGS (3)
  1. INCLISIRAN [Suspect]
     Active Substance: INCLISIRAN
     Indication: Dyslipidaemia
     Dosage: 284 MG/1.5 ML SUBSEQUENT DOSE AFTER THREE MONTHS, THEN EVERY 6 MONTHS
     Route: 058
     Dates: start: 20230703
  2. INCLISIRAN [Suspect]
     Active Substance: INCLISIRAN
     Indication: Type IIa hyperlipidaemia
     Dosage: 284 MG/1.5 ML SUBSEQUENT DOSE AFTER THREE MONTHS, THEN EVERY 6 MONTHS
     Route: 058
     Dates: start: 20231003
  3. INCLISIRAN [Suspect]
     Active Substance: INCLISIRAN
     Dosage: 284 MG/1.5 ML SUBSEQUENT DOSE AFTER THREE MONTHS, THEN EVERY 6 MONTHS
     Route: 058
     Dates: start: 20240410

REACTIONS (2)
  - Lipoprotein (a) decreased [Not Recovered/Not Resolved]
  - Hepatic enzyme increased [Not Recovered/Not Resolved]

NARRATIVE: CASE EVENT DATE: 20240329
